FAERS Safety Report 6781629-2 (Version None)
Quarter: 2010Q2

REPORT INFORMATION
  Report Type: 
  Country: None (occurrence: None)
  Receive Date: 20100621
  Receipt Date: 20100607
  Transmission Date: 20101027
  Serious: Yes (Other)
  Sender: FDA-Public Use
  Company Number: US-BAYER-201025004NA

PATIENT
  Age: 49 Year
  Sex: Female
  Weight: 66 kg

DRUGS (4)
  1. AVELOX [Suspect]
     Indication: SINUS DISORDER
     Dates: start: 20100527, end: 20100606
  2. ZYRTEC [Concomitant]
     Indication: MULTIPLE ALLERGIES
  3. CORTISONE [Concomitant]
     Indication: BACK DISORDER
     Dosage: IN BACK
     Dates: start: 20100518
  4. STEROIDS [Concomitant]
     Indication: SINUS DISORDER
     Route: 045
     Dates: start: 20100527

REACTIONS (4)
  - HYPOAESTHESIA [None]
  - HYPOAESTHESIA FACIAL [None]
  - PARAESTHESIA [None]
  - SCIATICA [None]
